FAERS Safety Report 18984567 (Version 3)
Quarter: 2021Q2

REPORT INFORMATION
  Report Type: Report from Study
  Country: US (occurrence: US)
  Receive Date: 20210309
  Receipt Date: 20210503
  Transmission Date: 20210717
  Serious: Yes (Hospitalization)
  Sender: FDA-Public Use
  Company Number: US-ROCHE-2777981

PATIENT
  Age: 73 Year
  Sex: Male
  Weight: 94.4 kg

DRUGS (26)
  1. ATEZOLIZUMAB. [Suspect]
     Active Substance: ATEZOLIZUMAB
     Indication: NON-SMALL CELL LUNG CANCER
     Dosage: ON 04/FEB/2021, RECEIVED MOST RECENT DOSE OF ATEZOLIZUMAB PRIOR TO ADVERSE EVENT
     Route: 042
     Dates: start: 20190626
  2. XL184 [Suspect]
     Active Substance: CABOZANTINIB
     Route: 048
     Dates: end: 20210205
  3. MUPIROCIN. [Concomitant]
     Active Substance: MUPIROCIN
  4. METOPROLOL TARTRATE. [Concomitant]
     Active Substance: METOPROLOL TARTRATE
  5. IMODIUM [Concomitant]
     Active Substance: LOPERAMIDE HYDROCHLORIDE
  6. MARIJUANA [Concomitant]
     Active Substance: CANNABIS SATIVA SUBSP. INDICA TOP
  7. CLINDAMYCIN PHOSPHATE. [Concomitant]
     Active Substance: CLINDAMYCIN PHOSPHATE
  8. SODIUM CHLORIDE. [Concomitant]
     Active Substance: SODIUM CHLORIDE
  9. COSYNTROPIN. [Concomitant]
     Active Substance: COSYNTROPIN
  10. CIPRODEX (UNITED STATES) [Concomitant]
  11. AMBIEN [Concomitant]
     Active Substance: ZOLPIDEM TARTRATE
  12. ATORVASTATIN CALCIUM. [Concomitant]
     Active Substance: ATORVASTATIN CALCIUM
  13. PROCHLORPERAZINE EDISYLATE. [Concomitant]
     Active Substance: PROCHLORPERAZINE EDISYLATE
  14. ACETAMINOPHEN. [Concomitant]
     Active Substance: ACETAMINOPHEN
  15. XL184 [Suspect]
     Active Substance: CABOZANTINIB
     Indication: NON-SMALL CELL LUNG CANCER
     Dosage: ON 04/FEB/2021, RECEIVED MOST RECENT DOSE PRIOR TO ADVERSE EVENT
     Route: 048
     Dates: start: 20190626
  16. ASPIRIN. [Concomitant]
     Active Substance: ASPIRIN
  17. MAGNESIUM OXIDE. [Concomitant]
     Active Substance: MAGNESIUM OXIDE
  18. MIDAZOLAM. [Concomitant]
     Active Substance: MIDAZOLAM
  19. XL184 [Suspect]
     Active Substance: CABOZANTINIB
     Route: 048
     Dates: start: 20210210
  20. BENAZEPRIL HCL [Concomitant]
     Active Substance: BENAZEPRIL HYDROCHLORIDE
  21. HYDROCORTISONE. [Concomitant]
     Active Substance: HYDROCORTISONE
  22. MAGNESIUM SULFATE. [Concomitant]
     Active Substance: MAGNESIUM SULFATE
  23. HEPARIN SODIUM. [Concomitant]
     Active Substance: HEPARIN SODIUM
  24. METFORMIN HYDROCHLORIDE. [Concomitant]
     Active Substance: METFORMIN HYDROCHLORIDE
  25. KEPPRA [Concomitant]
     Active Substance: LEVETIRACETAM
  26. PSEUDOEPHEDRINE HYDROCHLORIDE. [Concomitant]
     Active Substance: PSEUDOEPHEDRINE HYDROCHLORIDE

REACTIONS (2)
  - Chills [Recovered/Resolved]
  - Troponin increased [Recovered/Resolved]

NARRATIVE: CASE EVENT DATE: 20210204
